FAERS Safety Report 17789594 (Version 1)
Quarter: 2020Q2

REPORT INFORMATION
  Report Type: Spontaneous
  Country: GB (occurrence: GB)
  Receive Date: 20200515
  Receipt Date: 20200515
  Transmission Date: 20200714
  Serious: Yes (Other)
  Sender: FDA-Public Use
  Company Number: GB-TEVA-2020-GB-1235195

PATIENT
  Age: 43 Year
  Sex: Female
  Weight: 76.65 kg

DRUGS (3)
  1. SUMATRIPTAN. [Concomitant]
     Active Substance: SUMATRIPTAN
  2. TANACETUM PARTHENIUM [Concomitant]
     Active Substance: TANACETUM PARTHENIUM WHOLE
  3. MIRTAZAPINE. [Suspect]
     Active Substance: MIRTAZAPINE
     Indication: ANXIETY
     Dosage: 15 MG
     Route: 048
     Dates: start: 20200417, end: 20200418

REACTIONS (8)
  - Oropharyngeal pain [Recovered/Resolved]
  - Somnolence [Unknown]
  - Dry throat [Recovered/Resolved]
  - Mouth ulceration [Recovered/Resolved]
  - Nightmare [Unknown]
  - Pyrexia [Recovered/Resolved]
  - Dry mouth [Recovered/Resolved]
  - Myalgia [Recovered/Resolved]

NARRATIVE: CASE EVENT DATE: 20200417
